FAERS Safety Report 6666908-1 (Version None)
Quarter: 2010Q2

REPORT INFORMATION
  Report Type: 
  Country: None (occurrence: None)
  Receive Date: 20100405
  Receipt Date: 20100322
  Transmission Date: 20101027
  Serious: Yes (Other)
  Sender: FDA-Public Use
  Company Number: PHHY2010IN17719

PATIENT
  Age: 35 Year
  Sex: Female
  Weight: 63 kg

DRUGS (6)
  1. OXYTOCIN [Suspect]
     Indication: POSTPARTUM HAEMORRHAGE
  2. METHERGINE [Suspect]
     Indication: SHOCK
  3. PROSTAGLANDIN F2 ALPHA [Concomitant]
  4. GELATIN [Concomitant]
     Dosage: 500 ML, UNK
  5. PLATELETS [Concomitant]
     Dosage: 2 UNITS
  6. BLOOD, WHOLE [Concomitant]

REACTIONS (3)
  - HAEMATEMESIS [None]
  - PULMONARY OEDEMA [None]
  - RENAL FAILURE ACUTE [None]
